FAERS Safety Report 7633872-8 (Version None)
Quarter: 2011Q3

REPORT INFORMATION
  Report Type: 
  Country: None (occurrence: None)
  Receive Date: 20110725
  Receipt Date: 20110720
  Transmission Date: 20111222
  Serious: Yes (Life-Threatening)
  Sender: FDA-Public Use
  Company Number: AU-ASTRAZENECA-2011SE43151

PATIENT
  Age: 69 Year

DRUGS (5)
  1. ROCURANIUM [Concomitant]
     Dates: start: 20110517
  2. MORPHINE [Suspect]
     Route: 065
  3. FENTANYL [Suspect]
     Route: 065
  4. PROPOFOL [Suspect]
     Route: 042
  5. SUXAMETHONIUM NOS [Suspect]
     Route: 065

REACTIONS (2)
  - RESPIRATORY FAILURE [None]
  - HYPOTENSION [None]
